FAERS Safety Report 8623092-2 (Version None)
Quarter: 2012Q3

REPORT INFORMATION
  Report Type: 
  Country: None (occurrence: None)
  Receive Date: 20120827
  Receipt Date: 20120817
  Transmission Date: 20120928
  Serious: Yes (Other)
  Sender: FDA-Public Use
  Company Number: JP-JNJFOC-20120810417

PATIENT
  Sex: Female

DRUGS (1)
  1. RISPERIDONE [Suspect]
     Indication: PRODUCT USED FOR UNKNOWN INDICATION
     Route: 065

REACTIONS (3)
  - MUSCULAR WEAKNESS [None]
  - HYPOAESTHESIA [None]
  - MENIERE'S DISEASE [None]
